FAERS Safety Report 25372967 (Version 1)
Quarter: 2025Q2

REPORT INFORMATION
  Report Type: Spontaneous
  Country: US (occurrence: US)
  Receive Date: 20250529
  Receipt Date: 20250529
  Transmission Date: 20250716
  Serious: No
  Sender: CIPLA
  Company Number: US-CIPLA LTD.-2024US09415

PATIENT

DRUGS (10)
  1. ALBUTEROL [Suspect]
     Active Substance: ALBUTEROL
     Indication: Dyspnoea
     Route: 065
     Dates: start: 2021
  2. ALBUTEROL [Suspect]
     Active Substance: ALBUTEROL
     Route: 065
  3. ALBUTEROL [Suspect]
     Active Substance: ALBUTEROL
     Route: 065
  4. ATORVASTATIN [Concomitant]
     Active Substance: ATORVASTATIN
     Indication: Blood cholesterol abnormal
     Dosage: 20 MILLIGRAM, QD (FOR PROBABLY 5 YEARS)
     Route: 065
     Dates: start: 2019
  5. LEVOTHYROXINE [Concomitant]
     Active Substance: LEVOTHYROXINE
     Indication: Thyroid disorder
     Dosage: 0.2 MILLIGRAM, QD (FOR SEVERAL YEARS)
     Route: 065
  6. CALCIUM [Concomitant]
     Active Substance: CALCIUM
     Indication: General physical health deterioration
     Dosage: 1200 MILLIGRAM, QD (FOR LONG TIME PROBABLY 20 YEARS)
     Route: 065
     Dates: start: 2004
  7. VITAMIN D3 [Concomitant]
     Active Substance: CHOLECALCIFEROL
     Indication: General physical health deterioration
     Dosage: 2000 MILLIGRAM, QD (FOR LONG TIME PROBABLY 20 YEARS)
     Route: 065
     Dates: start: 2004
  8. VITAMIN B12 [Concomitant]
     Active Substance: CYANOCOBALAMIN
     Indication: Vitamin supplementation
     Dosage: 1000 MILLIGRAM, QD (FOR 1 YEAR)
     Route: 065
     Dates: start: 2023
  9. VITAMIN E [Concomitant]
     Active Substance: .ALPHA.-TOCOPHEROL
     Indication: Vitamin supplementation
     Dosage: 100 MILLIGRAM, QD (ABOUT 1 YEAR)
     Route: 065
     Dates: start: 2023
  10. PEPCID [Concomitant]
     Active Substance: FAMOTIDINE
     Indication: Product used for unknown indication
     Route: 065

REACTIONS (3)
  - Drug dose omission by device [Unknown]
  - Device delivery system issue [Unknown]
  - Product quality issue [Unknown]
